FAERS Safety Report 10246950 (Version 5)
Quarter: 2015Q1

REPORT INFORMATION
  Report Type: Spontaneous
  Country: US (occurrence: US)
  Receive Date: 20140619
  Receipt Date: 20150326
  Transmission Date: 20150720
  Serious: Yes (Disabling)
  Sender: FDA-Public Use
  Company Number: US-009507513-1406USA007302

PATIENT
  Sex: Male

DRUGS (1)
  1. PROPECIA [Suspect]
     Active Substance: FINASTERIDE
     Indication: ALOPECIA
     Dosage: 1 MG, QD
     Route: 048
     Dates: start: 20020529, end: 20021107

REACTIONS (15)
  - Ejaculation disorder [Not Recovered/Not Resolved]
  - Erectile dysfunction [Not Recovered/Not Resolved]
  - Cognitive disorder [Not Recovered/Not Resolved]
  - Sexual dysfunction [Not Recovered/Not Resolved]
  - Cough [Unknown]
  - Blood testosterone decreased [Unknown]
  - Anxiety [Not Recovered/Not Resolved]
  - Thinking abnormal [Not Recovered/Not Resolved]
  - Libido decreased [Not Recovered/Not Resolved]
  - Depression [Not Recovered/Not Resolved]
  - Fatigue [Unknown]
  - Reproductive tract disorder [Not Recovered/Not Resolved]
  - Ejaculation failure [Not Recovered/Not Resolved]
  - Dyspnoea [Unknown]
  - Weight increased [Unknown]

NARRATIVE: CASE EVENT DATE: 2002
